FAERS Safety Report 10018361 (Version 8)
Quarter: 2017Q3

REPORT INFORMATION
  Report Type: Report from Study
  Country: US (occurrence: US)
  Receive Date: 20140318
  Receipt Date: 20170824
  Transmission Date: 20171127
  Serious: Yes (Life-Threatening, Hospitalization, Other)
  Sender: FDA-Public Use
  Company Number: US-ALEXION PHARMACEUTICALS INC.-A201400809

PATIENT
  Age: 42 Year
  Sex: Female

DRUGS (6)
  1. SOLIRIS [Suspect]
     Active Substance: ECULIZUMAB
     Dosage: 900 MG, QW
     Route: 042
     Dates: start: 20131010
  2. SOLIRIS [Suspect]
     Active Substance: ECULIZUMAB
     Dosage: 600 MG, QW
     Route: 042
     Dates: start: 20131010
  3. SOLIRIS [Suspect]
     Active Substance: ECULIZUMAB
     Dosage: 600 MG, QD
     Route: 042
     Dates: start: 20140324
  4. SOLIRIS [Suspect]
     Active Substance: ECULIZUMAB
     Dosage: 1200 MG, Q2W
     Route: 042
     Dates: start: 201401
  5. CHEMOTHERAPY [Concomitant]
     Active Substance: UNSPECIFIED INGREDIENT
     Indication: PRODUCT USED FOR UNKNOWN INDICATION
     Dosage: UNK
     Route: 065
  6. SOLIRIS [Suspect]
     Active Substance: ECULIZUMAB
     Indication: HAEMOLYTIC URAEMIC SYNDROME
     Dosage: 1200 MG, Q2W
     Route: 042
     Dates: start: 20131010

REACTIONS (23)
  - Mental status changes [Not Recovered/Not Resolved]
  - Slow response to stimuli [Unknown]
  - Histiocytosis haematophagic [Unknown]
  - Neck pain [Unknown]
  - Foreign body in eye [Recovered/Resolved]
  - Blindness unilateral [Unknown]
  - Pneumonia [Unknown]
  - Blood lactate dehydrogenase increased [Not Recovered/Not Resolved]
  - Blindness [Recovering/Resolving]
  - Retinal haemorrhage [Unknown]
  - Chest pain [Not Recovered/Not Resolved]
  - Therapy change [Unknown]
  - Pyrexia [Unknown]
  - Visual impairment [Unknown]
  - Platelet count decreased [Not Recovered/Not Resolved]
  - Blood creatinine increased [Not Recovered/Not Resolved]
  - Condition aggravated [Unknown]
  - Infection [Unknown]
  - Leukaemia [Unknown]
  - Oedema [Unknown]
  - Chest pain [Recovered/Resolved]
  - Diarrhoea [Not Recovered/Not Resolved]
  - Pulmonary oedema [Unknown]

NARRATIVE: CASE EVENT DATE: 2014
